FAERS Safety Report 5292512-6 (Version None)
Quarter: 2007Q2

REPORT INFORMATION
  Report Type: 
  Country: None (occurrence: None)
  Receive Date: 20070410
  Receipt Date: 20070329
  Transmission Date: 20071010
  Serious: Yes (Other)
  Sender: FDA-Public Use
  Company Number: PH-PFIZER INC-2007025893

PATIENT
  Age: 82 Year
  Sex: Male

DRUGS (2)
  1. CLINDAMYCIN HYDROCHLORIDE [Suspect]
  2. CIPROFLOXACIN [Suspect]

REACTIONS (5)
  - ANAPHYLACTIC REACTION [None]
  - ARRHYTHMIA [None]
  - DRUG INEFFECTIVE [None]
  - FOOT AMPUTATION [None]
  - MYOCARDIAL INFARCTION [None]
